FAERS Safety Report 9505890 (Version 1)
Quarter: 2013Q1

REPORT INFORMATION
  Report Type: Spontaneous
  Country: US (occurrence: None)
  Receive Date: 20130228
  Receipt Date: 20130228
  Transmission Date: 20140127
  Serious: Yes (Other)
  Sender: FDA-Public Use
  Company Number: 1211USA003305

PATIENT
  Age: 81 Year
  Sex: Female

DRUGS (3)
  1. COSOPT [Suspect]
     Indication: INTRAOCULAR PRESSURE TEST ABNORMAL
     Dosage: UNK, OPHTHALMIC
  2. COSOPT [Suspect]
     Indication: GLAUCOMA
     Dosage: UNK, OPHTHALMIC
  3. COMBIGAN [Suspect]
     Dosage: UNK, OPHTHALMIC

REACTIONS (10)
  - Eyelid ptosis [None]
  - Cataract operation [None]
  - Feeling abnormal [None]
  - Lacrimation increased [None]
  - Vision blurred [None]
  - Headache [None]
  - Nausea [None]
  - Glaucoma surgery [None]
  - Conjunctival hyperaemia [None]
  - Conjunctivitis [None]
